FAERS Safety Report 21098305 (Version 1)
Quarter: 2022Q3

REPORT INFORMATION
  Report Type: Spontaneous
  Country: US (occurrence: US)
  Receive Date: 20220719
  Receipt Date: 20220719
  Transmission Date: 20221027
  Serious: No
  Sender: FDA-Public Use
  Company Number: US-STRIDES ARCOLAB LIMITED-2021SP029822

PATIENT
  Age: 66 Year
  Sex: Male

DRUGS (3)
  1. MYCOPHENOLATE MOFETIL [Suspect]
     Active Substance: MYCOPHENOLATE MOFETIL
     Indication: Lymphoproliferative disorder
     Dosage: 1000 MILLIGRAM, BID
     Route: 065
  2. PREDNISOLONE [Concomitant]
     Active Substance: PREDNISOLONE
     Indication: Lymphoproliferative disorder
     Dosage: 20 MILLIGRAM, PER DAY
     Route: 065
  3. PREDNISOLONE [Concomitant]
     Active Substance: PREDNISOLONE
     Dosage: UNK, DOSE TAPERED
     Route: 065

REACTIONS (3)
  - Dizziness [Unknown]
  - Nausea [Unknown]
  - Off label use [Unknown]
